FAERS Safety Report 24042117 (Version 1)
Quarter: 2024Q3

REPORT INFORMATION
  Report Type: Spontaneous
  Country: GB (occurrence: None)
  Receive Date: 20240702
  Receipt Date: 20240702
  Transmission Date: 20241016
  Serious: Yes (Hospitalization, Other)
  Sender: ASTRAZENECA
  Company Number: 2024A145239

PATIENT
  Age: 72 Year
  Sex: Female

DRUGS (16)
  1. ANDEXANET ALFA [Suspect]
     Active Substance: ANDEXANET ALFA
     Indication: Gastrointestinal haemorrhage
     Dosage: HIGH DOSE REGIMEN (BOLUS OF 800MG OVER 30 MINUTES FOLLOWED BY CONTINUOUS INFUSION OF 960MG OVER 1...
     Dates: start: 20230625, end: 20230625
  2. AMITRIPTYLINE [Concomitant]
     Active Substance: AMITRIPTYLINE
  3. APIXABAN [Concomitant]
     Active Substance: APIXABAN
  4. ASPIRIN [Concomitant]
     Active Substance: ASPIRIN
  5. BISOPROLOL [Concomitant]
     Active Substance: BISOPROLOL\BISOPROLOL FUMARATE
  6. CITALOPRAM [Concomitant]
     Active Substance: CITALOPRAM\CITALOPRAM HYDROBROMIDE
  7. CODEINE [Concomitant]
     Active Substance: CODEINE
  8. FLUTICASONE AND UMECLIDINIUM AND VILANTEROL [Concomitant]
  9. FUROSEMIDE [Concomitant]
     Active Substance: FUROSEMIDE
  10. LANSOPRAZOLE [Concomitant]
     Active Substance: LANSOPRAZOLE
  11. LETROZOLE [Concomitant]
     Active Substance: LETROZOLE
  12. LEVOTHYROXINE [Concomitant]
     Active Substance: LEVOTHYROXINE\LEVOTHYROXINE SODIUM
  13. MONTELUKAST [Concomitant]
     Active Substance: MONTELUKAST SODIUM
  14. ACETAMINOPHEN [Concomitant]
     Active Substance: ACETAMINOPHEN
  15. ALBUTEROL [Concomitant]
     Active Substance: ALBUTEROL
  16. SPIRONOLACTONE [Concomitant]
     Active Substance: SPIRONOLACTONE

REACTIONS (4)
  - Monoparesis [Unknown]
  - Headache [Unknown]
  - Fatigue [Unknown]
  - Somnolence [Unknown]

NARRATIVE: CASE EVENT DATE: 20230626
